FAERS Safety Report 7481754-7 (Version None)
Quarter: 2011Q2

REPORT INFORMATION
  Report Type: 
  Country: None (occurrence: None)
  Receive Date: 20110516
  Receipt Date: 20110509
  Transmission Date: 20111010
  Serious: Yes (Hospitalization)
  Sender: FDA-Public Use
  Company Number: B0716749A

PATIENT
  Sex: Female
  Weight: 62 kg

DRUGS (4)
  1. LAPATINIB [Suspect]
     Dosage: 1250MG PER DAY
     Route: 048
     Dates: start: 20110331, end: 20110412
  2. CANDESARTAN CILEXETIL [Concomitant]
  3. THYROXIN [Concomitant]
     Indication: HYPOTHYROIDISM
  4. PACLITAXEL [Suspect]
     Dosage: 130MG WEEKLY
     Route: 042
     Dates: start: 20110331, end: 20110413

REACTIONS (1)
  - LUMBAR VERTEBRAL FRACTURE [None]
